FAERS Safety Report 14304247 (Version 1)
Quarter: 2017Q4

REPORT INFORMATION
  Report Type: Spontaneous
  Country: US (occurrence: US)
  Receive Date: 20171219
  Receipt Date: 20171219
  Transmission Date: 20180321
  Serious: Yes (Death, Hospitalization)
  Sender: FDA-Public Use
  Company Number: US-OTSUKA-KJ20051141

PATIENT
  Sex: Female

DRUGS (1)
  1. ABILIFY [Suspect]
     Active Substance: ARIPIPRAZOLE
     Indication: PRODUCT USED FOR UNKNOWN INDICATION
     Dosage: UNK
     Route: 065

REACTIONS (8)
  - Death [Fatal]
  - Blood glucose increased [Fatal]
  - Psychotic disorder [Unknown]
  - Mental disorder [Unknown]
  - Blood potassium increased [Fatal]
  - Altered state of consciousness [Fatal]
  - Dyspnoea [Fatal]
  - Depressed level of consciousness [Fatal]
